FAERS Safety Report 25685032 (Version 1)
Quarter: 2025Q3

REPORT INFORMATION
  Report Type: Report from Study
  Country: US (occurrence: US)
  Receive Date: 20250815
  Receipt Date: 20250815
  Transmission Date: 20251020
  Serious: Yes (Other)
  Sender: ALEXION PHARMACEUTICALS
  Company Number: US-AstraZeneca-CH-00928517A

PATIENT
  Age: 45 Year
  Sex: Female

DRUGS (1)
  1. EPLONTERSEN SODIUM [Suspect]
     Active Substance: EPLONTERSEN SODIUM
     Dosage: 45 MILLIGRAM, Q4W

REACTIONS (5)
  - Pain in extremity [Unknown]
  - Gait disturbance [Unknown]
  - Carpal tunnel syndrome [Unknown]
  - Nausea [Recovering/Resolving]
  - Injection site pain [Unknown]

NARRATIVE: CASE EVENT DATE: 20250803
